FAERS Safety Report 14147907 (Version 2)
Quarter: 2017Q4

REPORT INFORMATION
  Report Type: Spontaneous
  Country: DE (occurrence: DE)
  Receive Date: 20171031
  Receipt Date: 20171204
  Transmission Date: 20180321
  Serious: Yes (Other)
  Sender: FDA-Public Use
  Company Number: DE-TEVA-819320GER

PATIENT
  Age: 66 Year
  Sex: Female

DRUGS (2)
  1. XARELTO [Concomitant]
     Active Substance: RIVAROXABAN
     Indication: PULMONARY EMBOLISM
     Dates: start: 2017
  2. SALBUTAMOL-RATIOPHARM N DOSIERAEROSOL [Suspect]
     Active Substance: ALBUTEROL
     Indication: DYSPNOEA
     Dosage: 2-3 TIMES A WEEK, USE FOR LONG TIME
     Route: 055
     Dates: start: 2004

REACTIONS (3)
  - Foreign body aspiration [Recovered/Resolved]
  - Cough [Recovered/Resolved]
  - Device issue [Unknown]

NARRATIVE: CASE EVENT DATE: 201706
